FAERS Safety Report 6654094-3 (Version None)
Quarter: 2010Q1

REPORT INFORMATION
  Report Type: 
  Country: None (occurrence: None)
  Receive Date: 20100326
  Receipt Date: 20100319
  Transmission Date: 20100710
  Serious: Yes (Hospitalization)
  Sender: FDA-Public Use
  Company Number: PHHO2010RU01605

PATIENT
  Sex: Male
  Weight: 112 kg

DRUGS (11)
  1. BLINDED ALISKIREN ALI+TAB+CF [Suspect]
     Indication: CARDIAC FAILURE
     Dosage: CODE NOT BROKEN
     Route: 048
     Dates: start: 20100111, end: 20100124
  2. BLINDED ENALAPRIL COMP-ENA+ [Suspect]
     Indication: CARDIAC FAILURE
     Dosage: CODE NOT BROKEN
     Route: 048
     Dates: start: 20100111, end: 20100124
  3. BLINDED NO TREATMENT RECEIVED NOMED [Suspect]
     Indication: CARDIAC FAILURE
     Dosage: CODE NOT BROKEN
     Route: 048
     Dates: start: 20100111, end: 20100124
  4. BLINDED ALISKIREN ALI+TAB+CF [Suspect]
     Dosage: NO TREATMENT
     Dates: start: 20100125, end: 20100205
  5. BLINDED ENALAPRIL COMP-ENA+ [Suspect]
     Dosage: NO TREATMENT
     Dates: start: 20100125, end: 20100205
  6. BLINDED NO TREATMENT RECEIVED NOMED [Suspect]
     Dosage: NO TREATMENT
     Dates: start: 20100125, end: 20100205
  7. BLINDED ALISKIREN ALI+TAB+CF [Suspect]
     Dosage: CODE NOT BROKEN
     Route: 048
     Dates: start: 20100205, end: 20100209
  8. BLINDED ENALAPRIL COMP-ENA+ [Suspect]
     Dosage: CODE NOT BROKEN
     Route: 048
     Dates: start: 20100205, end: 20100209
  9. BLINDED NO TREATMENT RECEIVED NOMED [Suspect]
     Dosage: CODE NOT BROKEN
     Route: 048
     Dates: start: 20100205, end: 20100209
  10. ALISKIREN [Suspect]
     Indication: CARDIAC FAILURE
     Route: 048
  11. COMPARATOR ENALAPRIL [Suspect]
     Indication: CARDIAC FAILURE
     Route: 048

REACTIONS (13)
  - ANGINA PECTORIS [None]
  - ASTHENIA [None]
  - BUNDLE BRANCH BLOCK LEFT [None]
  - CARDIAC FAILURE [None]
  - CARDIOMEGALY [None]
  - CHEST PAIN [None]
  - DISEASE PROGRESSION [None]
  - DYSPNOEA [None]
  - FATIGUE [None]
  - HYPOTENSION [None]
  - MYOCARDIAL ISCHAEMIA [None]
  - VENOUS INSUFFICIENCY [None]
  - VENTRICULAR DYSFUNCTION [None]
